FAERS Safety Report 21166434 (Version 1)
Quarter: 2022Q3

REPORT INFORMATION
  Report Type: Spontaneous
  Country: US (occurrence: None)
  Receive Date: 20220802
  Receipt Date: 20220802
  Transmission Date: 20221027
  Serious: No
  Sender: FDA-Public Use
  Company Number: None

PATIENT
  Age: 80 Year
  Sex: Male

DRUGS (1)
  1. GAMMAGARD S/D [Suspect]
     Active Substance: HUMAN IMMUNOGLOBULIN G
     Indication: Myasthenia gravis
     Dosage: OTHER QUANTITY : 80GM;?OTHER FREQUENCY : EVERY 8 WEEKS;?
     Route: 042
     Dates: start: 20220331

REACTIONS (5)
  - Vision blurred [None]
  - Dysarthria [None]
  - Tremor [None]
  - Respiratory rate increased [None]
  - Infusion related reaction [None]

NARRATIVE: CASE EVENT DATE: 20220801
